FAERS Safety Report 12983166 (Version 2)
Quarter: 2017Q3

REPORT INFORMATION
  Report Type: Spontaneous
  Country: US (occurrence: US)
  Receive Date: 20161129
  Receipt Date: 20170816
  Transmission Date: 20171127
  Serious: No
  Sender: FDA-Public Use
  Company Number: US-MALLINCKRODT-T201604163

PATIENT
  Sex: Male
  Weight: 66 kg

DRUGS (2)
  1. FENTANYL TRANSDERMAL SYSTEM [Suspect]
     Active Substance: FENTANYL
     Indication: PANCREATITIS CHRONIC
     Dosage: 100 MCG
     Route: 062
  2. OXYCODONE [Suspect]
     Active Substance: OXYCODONE
     Indication: PRODUCT USED FOR UNKNOWN INDICATION
     Dosage: 10 MG BEFORE EATING
     Route: 065

REACTIONS (7)
  - Feeling abnormal [Recovered/Resolved]
  - Drug tolerance [Unknown]
  - Somnolence [Recovered/Resolved]
  - Glassy eyes [Recovered/Resolved]
  - Product adhesion issue [Unknown]
  - Drug ineffective [Unknown]
  - Drug withdrawal syndrome [Recovered/Resolved]
